FAERS Safety Report 9399454 (Version 2)
Quarter: 2013Q3

REPORT INFORMATION
  Report Type: Spontaneous
  Country: US (occurrence: US)
  Receive Date: 20130715
  Receipt Date: 20130919
  Transmission Date: 20140515
  Serious: Yes (Hospitalization)
  Sender: FDA-Public Use
  Company Number: US-BIOGENIDEC-2013BI062388

PATIENT
  Age: 41 Year
  Sex: Female

DRUGS (10)
  1. TECFIDERA [Suspect]
     Indication: MULTIPLE SCLEROSIS
     Route: 048
     Dates: start: 20130520, end: 20130526
  2. TECFIDERA [Suspect]
     Indication: MULTIPLE SCLEROSIS
     Route: 048
     Dates: start: 20130527, end: 20130618
  3. BACLOFEN [Concomitant]
     Indication: MUSCLE SPASMS
  4. OPANA [Concomitant]
     Indication: PAIN
  5. GABAPENTIN [Concomitant]
     Indication: NEURALGIA
  6. CYMBALTA [Concomitant]
     Indication: DEPRESSION
  7. ATIVAN [Concomitant]
     Indication: PANIC ATTACK
  8. VALIUM [Concomitant]
     Indication: PANIC ATTACK
  9. TRILEPTAL [Concomitant]
     Indication: MEMORY IMPAIRMENT
  10. SOLUMEDROL [Concomitant]
     Indication: MULTIPLE SCLEROSIS

REACTIONS (3)
  - Oedema peripheral [Recovered/Resolved]
  - Weight decreased [Recovered/Resolved]
  - Abasia [Recovered/Resolved]
